FAERS Safety Report 14078629 (Version 1)
Quarter: 2017Q4

REPORT INFORMATION
  Report Type: Spontaneous
  Country: US (occurrence: US)
  Receive Date: 20171012
  Receipt Date: 20171012
  Transmission Date: 20180321
  Serious: No
  Sender: FDA-Public Use
  Company Number: US-VERTEX PHARMACEUTICALS-2017-005615

PATIENT
  Sex: Female

DRUGS (7)
  1. TOBI [Concomitant]
     Active Substance: TOBRAMYCIN
  2. PREVACID [Concomitant]
     Active Substance: LANSOPRAZOLE
  3. ZENPEP [Concomitant]
     Active Substance: PANCRELIPASE AMYLASE\PANCRELIPASE LIPASE\PANCRELIPASE PROTEASE
  4. ORKAMBI [Suspect]
     Active Substance: IVACAFTOR\LUMACAFTOR
     Indication: CYSTIC FIBROSIS
     Dosage: UNK, BID
     Route: 048
  5. PROAIR HFA [Concomitant]
     Active Substance: ALBUTEROL SULFATE
  6. AQUADEKS                           /07679501/ [Concomitant]
     Active Substance: MINERALS\VITAMINS
  7. FLUORIDE                           /00168201/ [Concomitant]
     Active Substance: SODIUM FLUORIDE

REACTIONS (1)
  - Liver function test abnormal [Unknown]
